FAERS Safety Report 17636489 (Version 1)
Quarter: 2020Q2

REPORT INFORMATION
  Report Type: Spontaneous
  Country: US (occurrence: US)
  Receive Date: 20200404
  Receipt Date: 20200404
  Transmission Date: 20200713
  Serious: Yes (Other)
  Sender: FDA-Public Use
  Company Number: None

PATIENT
  Age: 37 Year
  Sex: Male
  Weight: 74.25 kg

DRUGS (17)
  1. KLONOPIN 1 MG [Concomitant]
  2. IBUPROFEN 800 MG [Concomitant]
     Active Substance: IBUPROFEN
  3. TYLENOL [Concomitant]
     Active Substance: ACETAMINOPHEN
  4. BUSPIRONE [Suspect]
     Active Substance: BUSPIRONE HYDROCHLORIDE
     Indication: ANXIETY
     Dosage: ?          QUANTITY:90 TABLET(S);?
     Route: 048
  5. BUSPIRONE [Suspect]
     Active Substance: BUSPIRONE HYDROCHLORIDE
     Indication: POST-TRAUMATIC STRESS DISORDER
     Dosage: ?          QUANTITY:90 TABLET(S);?
     Route: 048
  6. LISINOPRIL 20 MG [Concomitant]
     Active Substance: LISINOPRIL
  7. NEURONTIN [Concomitant]
     Active Substance: GABAPENTIN
  8. ZANIFLEX 4 MG [Concomitant]
  9. BUSPIRONE [Suspect]
     Active Substance: BUSPIRONE HYDROCHLORIDE
     Indication: OBSESSIVE THOUGHTS
     Dosage: ?          QUANTITY:90 TABLET(S);?
     Route: 048
  10. PAROXETINE HCL [Suspect]
     Active Substance: PAROXETINE HYDROCHLORIDE
  11. NICOTINE REPLACEMENT LOSANGE [Concomitant]
  12. BUSPIRONE [Suspect]
     Active Substance: BUSPIRONE HYDROCHLORIDE
     Indication: FLASHBACK
     Dosage: ?          QUANTITY:90 TABLET(S);?
     Route: 048
  13. SUBOXONE [Concomitant]
     Active Substance: BUPRENORPHINE HYDROCHLORIDE\NALOXONE HYDROCHLORIDE
  14. VISTERIL  50 MG [Concomitant]
  15. RESTERIL 7.5 MG [Concomitant]
  16. PAXIL [Concomitant]
     Active Substance: PAROXETINE HYDROCHLORIDE
  17. BUSPIRONE [Concomitant]
     Active Substance: BUSPIRONE HYDROCHLORIDE

REACTIONS (16)
  - Bruxism [None]
  - Dizziness [None]
  - Incoherent [None]
  - Memory impairment [None]
  - Headache [None]
  - Tremor [None]
  - Hypoaesthesia oral [None]
  - Seizure [None]
  - Contraindicated product administered [None]
  - Contraindicated product prescribed [None]
  - Chills [None]
  - Muscle twitching [None]
  - Neurological symptom [None]
  - Fatigue [None]
  - Dyskinesia [None]
  - Transcription medication error [None]

NARRATIVE: CASE EVENT DATE: 20200330
